FAERS Safety Report 7141348-X (Version None)
Quarter: 2010Q4

REPORT INFORMATION
  Report Type: 
  Country: None (occurrence: None)
  Receive Date: 20101207
  Receipt Date: 20101203
  Transmission Date: 20110411
  Serious: Yes (Hospitalization, Other)
  Sender: FDA-Public Use
  Company Number: PHHY2010KR04164

PATIENT
  Sex: Female

DRUGS (7)
  1. SIMULECT [Suspect]
     Indication: RENAL TRANSPLANT
     Dosage: 20 MG, DAILY
     Route: 042
     Dates: start: 20091214
  2. SIMULECT [Suspect]
     Dosage: 20 MG, ONCE/SINGLE
     Route: 042
     Dates: start: 20091218
  3. CYCLOSPORINE [Concomitant]
     Dosage: UNK
  4. PREDNISOLONE [Concomitant]
     Dosage: UNK
  5. MYCOPHENOLATE MOFETIL [Concomitant]
     Dosage: UNK
  6. ALDACTONE [Concomitant]
     Indication: ASCITES
     Dosage: UNK
     Dates: start: 20100111, end: 20100114
  7. LASIX [Concomitant]
     Indication: ASCITES
     Dosage: UNK
     Dates: start: 20091230, end: 20100103

REACTIONS (7)
  - ABDOMINAL DISTENSION [None]
  - ANAEMIA [None]
  - ASCITES [None]
  - KLEBSIELLA INFECTION [None]
  - OEDEMA PERIPHERAL [None]
  - THROMBOCYTOPENIA [None]
  - URINARY TRACT INFECTION [None]
